FAERS Safety Report 6815329-7 (Version None)
Quarter: 2010Q3

REPORT INFORMATION
  Report Type: 
  Country: None (occurrence: None)
  Receive Date: 20100702
  Receipt Date: 20100623
  Transmission Date: 20110219
  Serious: Yes (Hospitalization)
  Sender: FDA-Public Use
  Company Number: JP-BRISTOL-MYERS SQUIBB COMPANY-15171846

PATIENT
  Age: 88 Year
  Sex: Male

DRUGS (4)
  1. ABILIFY [Suspect]
     Indication: SENILE PSYCHOSIS
     Dosage: 3 MGORAL QD 23JUN10-ONGOING
     Route: 048
     Dates: start: 20100511, end: 20100622
  2. URIEF [Concomitant]
     Indication: HYPERTENSION
     Dosage: TABS
  3. AMLODIPINE BESYLATE [Concomitant]
     Indication: HYPERTENSION
  4. YOKUKANSAN [Concomitant]

REACTIONS (1)
  - ILEUS PARALYTIC [None]
